FAERS Safety Report 7733155-1 (Version None)
Quarter: 2011Q3

REPORT INFORMATION
  Report Type: 
  Country: None (occurrence: None)
  Receive Date: 20110902
  Receipt Date: 20110902
  Transmission Date: 20111222
  Serious: No
  Sender: FDA-Public Use
  Company Number: None

PATIENT
  Age: 59 Year
  Sex: Female
  Weight: 90.7194 kg

DRUGS (1)
  1. CYANOCOBALAMIN [Suspect]
     Indication: VITAMIN B12 DEFICIENCY
     Dosage: 1,000 MCG/ML ONCE A MONTH

REACTIONS (6)
  - IRRITABILITY [None]
  - TREMOR [None]
  - PANIC ATTACK [None]
  - PARANOIA [None]
  - TENSION [None]
  - AGITATION [None]
